FAERS Safety Report 9821090 (Version 2)
Quarter: 2014Q4

REPORT INFORMATION
  Report Type: Spontaneous
  Country: US (occurrence: None)
  Receive Date: 20131028
  Receipt Date: 20141015
  Transmission Date: 20150529
  Serious: Yes (Other)
  Sender: FDA-Public Use
  Company Number: 2013US001716

PATIENT
  Age: 52 Year
  Sex: Male
  Weight: 82 kg

DRUGS (6)
  1. NOVOLOG [Concomitant]
     Active Substance: INSULIN ASPART
  2. ICLUSIG [Suspect]
     Active Substance: PONATINIB
     Indication: ACUTE LYMPHOCYTIC LEUKAEMIA
     Dosage: 45 MG, QD, ORAL
     Route: 048
     Dates: start: 20130122, end: 20130409
  3. ASPIRIN (ASPIRIN) [Concomitant]
     Active Substance: ASPIRIN
  4. LANTUS [Concomitant]
     Active Substance: INSULIN GLARGINE
  5. CRESTOR [Concomitant]
     Active Substance: ROSUVASTATIN CALCIUM
  6. CALCIUM (CALCIUM) [Concomitant]
     Active Substance: CALCIUM

REACTIONS (3)
  - Disease progression [None]
  - Drug ineffective [None]
  - Acute lymphocytic leukaemia recurrent [None]

NARRATIVE: CASE EVENT DATE: 20130409
